FAERS Safety Report 15030209 (Version 1)
Quarter: 2018Q2

REPORT INFORMATION
  Report Type: Spontaneous
  Country: US (occurrence: US)
  Receive Date: 20180529
  Receipt Date: 20180529
  Transmission Date: 20180711
  Serious: No
  Sender: FDA-Public Use
  Company Number: None

PATIENT
  Age: 57 Year
  Sex: Male

DRUGS (1)
  1. TREMFYA [Suspect]
     Active Substance: GUSELKUMAB
     Route: 058
     Dates: start: 20180313, end: 20180529

REACTIONS (3)
  - Oropharyngeal pain [None]
  - Pulmonary congestion [None]
  - Respiratory tract infection [None]

NARRATIVE: CASE EVENT DATE: 20180529
